FAERS Safety Report 6331821-6 (Version None)
Quarter: 2009Q3

REPORT INFORMATION
  Report Type: 
  Country: None (occurrence: None)
  Receive Date: 20090826
  Receipt Date: 20090819
  Transmission Date: 20100115
  Serious: Yes (Disabling)
  Sender: FDA-Public Use
  Company Number: OSCN-PR-0908S-0403

PATIENT
  Age: 50 Year
  Sex: Male

DRUGS (4)
  1. OMNISCAN [Suspect]
     Indication: ARTHRALGIA
     Dosage: 1 ML DILUTED IN 150 MG OF NORMAL, INTRA-ARTICULAR
     Route: 013
     Dates: start: 20090731, end: 20090731
  2. OMNIPAQUE 140 [Suspect]
     Indication: ARTHRALGIA
     Dosage: 1 MG, SINGLE DOSE, INTRA-ARTICULAR
     Route: 014
     Dates: start: 20090731, end: 20090731
  3. LIDOCAINE [Concomitant]
  4. SODIUM CHLORIDE [Concomitant]

REACTIONS (7)
  - ASPIRATION JOINT ABNORMAL [None]
  - INSOMNIA [None]
  - JOINT RANGE OF MOTION DECREASED [None]
  - MUSCLE TIGHTNESS [None]
  - MUSCULOSKELETAL PAIN [None]
  - NIGHT SWEATS [None]
  - STRESS [None]
